FAERS Safety Report 11754018 (Version 1)
Quarter: 2015Q4

REPORT INFORMATION
  Report Type: Spontaneous
  Country: US (occurrence: None)
  Receive Date: 20151118
  Receipt Date: 20151118
  Transmission Date: 20160304
  Serious: Yes (Other)
  Sender: FDA-Public Use
  Company Number: None

PATIENT
  Age: 72 Year
  Sex: Male
  Weight: 65.32 kg

DRUGS (2)
  1. SOVALDI [Suspect]
     Active Substance: SOFOSBUVIR
     Indication: PRODUCT USED FOR UNKNOWN INDICATION
     Dosage: ONE TAB QD PO
     Route: 048
     Dates: start: 20151020, end: 20151103
  2. DAKLINZA [Suspect]
     Active Substance: DACLATASVIR
     Indication: PRODUCT USED FOR UNKNOWN INDICATION
     Dosage: ONE TAB QD PO
     Route: 048
     Dates: start: 20151020, end: 20151103

REACTIONS (4)
  - Hyperhidrosis [None]
  - Headache [None]
  - Chills [None]
  - Therapy cessation [None]

NARRATIVE: CASE EVENT DATE: 20151020
